FAERS Safety Report 7734642-2 (Version None)
Quarter: 2011Q3

REPORT INFORMATION
  Report Type: 
  Country: None (occurrence: None)
  Receive Date: 20110907
  Receipt Date: 20110902
  Transmission Date: 20111222
  Serious: Yes (Hospitalization, Disabling)
  Sender: FDA-Public Use
  Company Number: US-MERCK-1108USA01802

PATIENT
  Age: 80 Year
  Sex: Female

DRUGS (12)
  1. NIFEDIPINE [Concomitant]
     Route: 065
  2. HYDRODIURIL [Concomitant]
     Route: 065
  3. ALUMINUM HYDROXIDE AND MAGNESIUM HYDROXIDE [Concomitant]
     Route: 065
  4. SPIRONOLACTONE [Concomitant]
     Route: 065
  5. BUPROPION HYDROCHLORIDE AND ZONISAMIDE [Concomitant]
     Route: 065
  6. SINEMET [Suspect]
     Indication: PARKINSON'S DISEASE
     Route: 065
     Dates: start: 20080101
  7. METOPROLOL SUCCINATE [Concomitant]
     Route: 065
  8. ROPINIROLE [Concomitant]
     Route: 065
  9. ACETAMINOPHEN [Concomitant]
     Route: 065
  10. QUINAPRIL HYDROCHLORIDE [Concomitant]
     Route: 065
  11. LYRICA [Concomitant]
     Route: 065
  12. ASPIRIN [Concomitant]
     Route: 065

REACTIONS (6)
  - DYSARTHRIA [None]
  - HYPERTENSION [None]
  - URINARY TRACT INFECTION [None]
  - ASTHENIA [None]
  - LETHARGY [None]
  - BLOOD POTASSIUM DECREASED [None]
